FAERS Safety Report 6875283-9 (Version None)
Quarter: 2010Q3

REPORT INFORMATION
  Report Type: 
  Country: None (occurrence: None)
  Receive Date: 20100727
  Receipt Date: 20100715
  Transmission Date: 20110219
  Serious: Yes (Other)
  Sender: FDA-Public Use
  Company Number: US-JNJFOC-20100506964

PATIENT
  Sex: Female

DRUGS (22)
  1. REMICADE [Suspect]
     Indication: CROHN'S DISEASE
     Route: 042
  2. REMICADE [Suspect]
     Route: 042
  3. REMICADE [Suspect]
     Route: 042
  4. REMICADE [Suspect]
     Route: 042
  5. REMICADE [Suspect]
     Route: 042
  6. ASACOL [Concomitant]
  7. NEXIUM [Concomitant]
  8. EFFEXOR [Concomitant]
  9. EFFEXOR [Concomitant]
  10. CLONAZEPAM [Concomitant]
  11. CLONAZEPAM [Concomitant]
  12. ZOMIG [Concomitant]
     Indication: MIGRAINE
  13. CLARITIN [Concomitant]
  14. CENTRUM SILVER [Concomitant]
  15. BUMEX [Concomitant]
  16. ASCORBIC ACID [Concomitant]
  17. VITAMIN D [Concomitant]
  18. ACIDOPHILUS [Concomitant]
  19. ATENOLOL [Concomitant]
  20. RED YEAST RICE EXTRACT [Concomitant]
  21. IRON [Concomitant]
  22. IRON [Concomitant]

REACTIONS (1)
  - ORAL DISORDER [None]
